FAERS Safety Report 9025952 (Version 1)
Quarter: 2013Q1

REPORT INFORMATION
  Report Type: Spontaneous
  Country: RO (occurrence: RO)
  Receive Date: 20130122
  Receipt Date: 20130122
  Transmission Date: 20140127
  Serious: Yes (Death)
  Sender: FDA-Public Use
  Company Number: RO-ROCHE-1181275

PATIENT
  Age: 76 Year
  Sex: Male

DRUGS (5)
  1. MABTHERA [Suspect]
     Indication: NON-HODGKIN^S LYMPHOMA
     Route: 065
  2. CYCLOPHOSPHAMIDE [Concomitant]
     Indication: NON-HODGKIN^S LYMPHOMA
  3. HYDROXYDAUNORUBICIN [Concomitant]
     Indication: NON-HODGKIN^S LYMPHOMA
  4. ONCOVIN [Concomitant]
     Indication: NON-HODGKIN^S LYMPHOMA
  5. PREDNISONE [Concomitant]
     Indication: NON-HODGKIN^S LYMPHOMA

REACTIONS (3)
  - Cardiac arrest [Fatal]
  - Hypotension [Fatal]
  - Chronic obstructive pulmonary disease [Fatal]
